FAERS Safety Report 12632451 (Version 2)
Quarter: 2016Q3

REPORT INFORMATION
  Report Type: Spontaneous
  Country: US (occurrence: US)
  Receive Date: 20160808
  Receipt Date: 20160808
  Transmission Date: 20161109
  Serious: No
  Sender: FDA-Public Use
  Company Number: US-BEH-2016062944

PATIENT
  Sex: Female
  Weight: 86 kg

DRUGS (20)
  1. ACETAMINOPHEN. [Concomitant]
     Active Substance: ACETAMINOPHEN
  2. LIDOCAINE/PRILOCAINE [Concomitant]
     Active Substance: LIDOCAINE\PRILOCAINE
  3. VERAPAMIL [Concomitant]
     Active Substance: VERAPAMIL HYDROCHLORIDE
  4. HIZENTRA [Suspect]
     Active Substance: HUMAN IMMUNOGLOBULIN G
     Route: 058
  5. OMEPRAZOLE. [Concomitant]
     Active Substance: OMEPRAZOLE
  6. SINGULAIR [Concomitant]
     Active Substance: MONTELUKAST SODIUM
  7. HIZENTRA [Suspect]
     Active Substance: HUMAN IMMUNOGLOBULIN G
     Route: 058
  8. LEVOTHYROXINE. [Concomitant]
     Active Substance: LEVOTHYROXINE
  9. EFFEXOR XR [Concomitant]
     Active Substance: VENLAFAXINE HYDROCHLORIDE
  10. ANASTROZOLE. [Concomitant]
     Active Substance: ANASTROZOLE
  11. MULTIVITAMIN [Concomitant]
     Active Substance: VITAMINS
  12. HIZENTRA [Suspect]
     Active Substance: HUMAN IMMUNOGLOBULIN G
     Indication: IMMUNODEFICIENCY COMMON VARIABLE
     Route: 058
  13. DIPHENHYDRAMINE. [Concomitant]
     Active Substance: DIPHENHYDRAMINE
  14. EPIPEN [Concomitant]
     Active Substance: EPINEPHRINE
  15. PREDNISONE. [Concomitant]
     Active Substance: PREDNISONE
  16. ASTELIN [Concomitant]
     Active Substance: AZELASTINE HYDROCHLORIDE
  17. QVAR [Concomitant]
     Active Substance: BECLOMETHASONE DIPROPIONATE
  18. COREG [Concomitant]
     Active Substance: CARVEDILOL
  19. CRESTOR [Concomitant]
     Active Substance: ROSUVASTATIN CALCIUM
  20. CALCIUM + VITAMIN D [Concomitant]
     Active Substance: CALCIUM\VITAMIN D

REACTIONS (1)
  - Fungal infection [Unknown]
